FAERS Safety Report 18366100 (Version 1)
Quarter: 2020Q4

REPORT INFORMATION
  Report Type: Report from Study
  Country: US (occurrence: US)
  Receive Date: 20201009
  Receipt Date: 20201009
  Transmission Date: 20210114
  Serious: Yes (Hospitalization, Other)
  Sender: FDA-Public Use
  Company Number: US-BAYER-2020-211815

PATIENT
  Age: 58 Year
  Sex: Male
  Weight: 69.39 kg

DRUGS (13)
  1. HYDROCHLOROTHIAZIDE. [Concomitant]
     Active Substance: HYDROCHLOROTHIAZIDE
  2. PIQRAY [Concomitant]
     Active Substance: ALPELISIB
  3. METHYLPREDNISOLONE. [Concomitant]
     Active Substance: METHYLPREDNISOLONE
  4. LISINOPRIL. [Concomitant]
     Active Substance: LISINOPRIL
  5. FOLFOX [Concomitant]
     Active Substance: FLUOROURACIL\LEUCOVORIN CALCIUM\OXALIPLATIN
  6. PANTOPRAZOLE [Concomitant]
     Active Substance: PANTOPRAZOLE
  7. LOMOTIL [LOPERAMIDE HYDROCHLORIDE] [Concomitant]
     Active Substance: LOPERAMIDE HYDROCHLORIDE
     Dosage: UNK
  8. ONDANSETRON [Concomitant]
     Active Substance: ONDANSETRON
  9. STIVARGA [Suspect]
     Active Substance: REGORAFENIB
     Indication: COLON CANCER
     Dosage: 80 MG, QD
     Route: 048
     Dates: start: 20200324
  10. POTASSIUM [Concomitant]
     Active Substance: POTASSIUM
  11. MULTIVITAMINS [VITAMINS NOS] [Concomitant]
     Active Substance: VITAMINS
  12. FUROSEMIDE. [Concomitant]
     Active Substance: FUROSEMIDE
  13. AVASTIN [SIMVASTATIN] [Concomitant]
     Active Substance: SIMVASTATIN

REACTIONS (13)
  - Constipation [None]
  - Rectal cancer metastatic [None]
  - Metastases to liver [None]
  - Diarrhoea [None]
  - Off label use [None]
  - Pulmonary mass [None]
  - Adenocarcinoma gastric [None]
  - Ascites [None]
  - Nasopharyngitis [None]
  - Intestinal mass [None]
  - Abdominal distension [None]
  - Anaemia [None]
  - Weight decreased [None]

NARRATIVE: CASE EVENT DATE: 20200324
